FAERS Safety Report 8967043 (Version 2)
Quarter: 2013Q1

REPORT INFORMATION
  Report Type: Spontaneous
  Country: US (occurrence: US)
  Receive Date: 20121214
  Receipt Date: 20130221
  Transmission Date: 20140127
  Serious: Yes (Death, Life-Threatening, Hospitalization)
  Sender: FDA-Public Use
  Company Number: US-INCYTE CORPORATION-2012IN002561

PATIENT
  Age: 58 None
  Sex: Female
  Weight: 152.38 kg

DRUGS (30)
  1. JAKAFI [Suspect]
     Indication: MYELOFIBROSIS
     Dosage: 10 MG, BID
     Route: 048
     Dates: start: 20121114, end: 201301
  2. ACIPHEX [Concomitant]
     Dosage: 20 MG, BID
     Route: 048
  3. ALLEGRA [Concomitant]
     Dosage: 180 MG, QD
     Route: 048
  4. ASPIRIN [Concomitant]
     Dosage: 81 MG, QD
     Route: 048
  5. BYETTA [Concomitant]
     Dosage: 10 MCG, QD
     Route: 058
  6. CYCLOBENZAPRINE [Concomitant]
     Dosage: 10 MG, BID
     Route: 048
  7. CYMBALTA [Concomitant]
     Dosage: 60 MG, QD
     Route: 048
  8. GABAPENTIN [Concomitant]
     Dosage: 100 MG, TID
     Route: 048
  9. HYDROXYZINE HYDROCHLORIDE [Concomitant]
     Dosage: 25 MG Q6H, PRN
     Route: 048
  10. LANTUS [Concomitant]
     Dosage: 48 UT, QD
     Route: 058
  11. NASONEX [Concomitant]
     Dosage: 2 SPRAYS DAILY
  12. NITROSTAT [Concomitant]
     Dosage: 0.4 MG 1 TAB EVERY 5 MINUTES PRN
     Route: 060
  13. NUCYNTA ER [Concomitant]
     Dosage: 100 MG, BID
     Route: 048
  14. ROBAXIN [Concomitant]
     Dosage: 750 MG Q8H, PRN
  15. VITAMIN C [Concomitant]
     Dosage: 500 MG, QD
     Route: 048
  16. ZOLPIDEM [Concomitant]
     Dosage: 10 MG, QD
  17. ZOVIRAX [Concomitant]
     Route: 061
  18. ALENDRONATE SODIUM [Concomitant]
     Dosage: 70 MG WEEKLY
  19. ALLOPURINOL [Concomitant]
     Dosage: 100 MG, QD
     Route: 048
  20. CYANOCOBALAMIN [Concomitant]
     Dosage: 1000 MCG IM WEEKLY
  21. DOXAZOSIN [Concomitant]
     Dosage: 1 MG, BID
     Route: 048
  22. ERGOCALCIFEROL [Concomitant]
     Dosage: 50000 UT, QD
  23. FERROUS SULFATE [Concomitant]
     Dosage: 325 MG, TID
  24. FOLIC ACID [Concomitant]
     Dosage: 1 MG, QD
     Route: 048
  25. HYOSCYAMINE [Concomitant]
  26. LISINOPRIL [Concomitant]
     Dosage: 10 MG, QD
  27. METOCLOPRAMIDE [Concomitant]
     Dosage: 10 MG, QD
  28. METOPROLOL [Concomitant]
     Dosage: 25 MG, QD
  29. POLYETHYLENE GLYCOL [Concomitant]
  30. PRAMIPEXOLE [Concomitant]
     Dosage: 1 MG, QD

REACTIONS (6)
  - Sepsis [Fatal]
  - Renal failure [Unknown]
  - Unresponsive to stimuli [Unknown]
  - Fatigue [Unknown]
  - Platelet count decreased [Unknown]
  - Blood count abnormal [Unknown]
